FAERS Safety Report 15958289 (Version 1)
Quarter: 2019Q1

REPORT INFORMATION
  Report Type: Report from Study
  Country: CA (occurrence: CA)
  Receive Date: 20190213
  Receipt Date: 20190213
  Transmission Date: 20190417
  Serious: Yes (Death, Hospitalization, Other)
  Sender: FDA-Public Use
  Company Number: PHHY2017CA081327

PATIENT
  Age: 64 Year
  Sex: Female

DRUGS (6)
  1. SANDOSTATIN LAR DEPOT [Suspect]
     Active Substance: OCTREOTIDE ACETATE
     Indication: CARCINOID TUMOUR
     Dosage: 60 MG, QMO (EVERY 4 WEEKS)
     Route: 030
     Dates: start: 20170525
  2. OCTREOTIDE. [Suspect]
     Active Substance: OCTREOTIDE
     Dosage: UNK, TID
     Route: 058
     Dates: start: 20170511, end: 20170515
  3. OCTREOTIDE. [Suspect]
     Active Substance: OCTREOTIDE
     Dosage: UNK, TID
     Route: 058
     Dates: start: 20170518, end: 201706
  4. OCTREOTIDE. [Suspect]
     Active Substance: OCTREOTIDE
     Dosage: UNK, TID
     Route: 058
     Dates: start: 201706
  5. FENTANYL. [Concomitant]
     Active Substance: FENTANYL
     Indication: PAIN
     Dosage: UNK
     Route: 065
     Dates: start: 20181203
  6. OCTREOTIDE. [Suspect]
     Active Substance: OCTREOTIDE
     Indication: CARCINOID TUMOUR
     Dosage: QD, THREE DAYS (TEST DOSE DAILY X 3DAYS)
     Route: 058
     Dates: start: 20170502, end: 20170504

REACTIONS (13)
  - Dyspnoea [Unknown]
  - Fatigue [Unknown]
  - Death [Fatal]
  - Cachexia [Unknown]
  - Infection [Unknown]
  - Confusional state [Unknown]
  - Body temperature decreased [Unknown]
  - Peripheral swelling [Unknown]
  - Dehydration [Unknown]
  - Abdominal distension [Unknown]
  - Drug ineffective [Unknown]
  - Nail discolouration [Unknown]
  - Pain [Unknown]

NARRATIVE: CASE EVENT DATE: 201705
